FAERS Safety Report 21812279 (Version 2)
Quarter: 2023Q1

REPORT INFORMATION
  Report Type: Report from Study
  Country: US (occurrence: US)
  Receive Date: 20230103
  Receipt Date: 20230208
  Transmission Date: 20230417
  Serious: Yes (Other)
  Sender: FDA-Public Use
  Company Number: US-ABBVIE-4256046

PATIENT
  Age: 45 Year
  Sex: Female

DRUGS (1)
  1. RINVOQ [Suspect]
     Active Substance: UPADACITINIB
     Indication: Rheumatoid arthritis
     Dosage: FORM STRENGTH: 15 MILLIGRAM?DAILY??FIRST ADMINISTRATION DATE- 12 MAR 2021
     Route: 048

REACTIONS (9)
  - Osteoarthritis [Unknown]
  - Chromaturia [Unknown]
  - COVID-19 [Recovered/Resolved]
  - Feeling abnormal [Unknown]
  - Tooth abscess [Unknown]
  - Shoulder operation [Unknown]
  - Dental caries [Unknown]
  - COVID-19 [Recovered/Resolved]
  - Hypoaesthesia teeth [Unknown]

NARRATIVE: CASE EVENT DATE: 20220101
